FAERS Safety Report 14166435 (Version 1)
Quarter: 2017Q4

REPORT INFORMATION
  Report Type: Spontaneous
  Country: FR (occurrence: FR)
  Receive Date: 20171107
  Receipt Date: 20171107
  Transmission Date: 20180321
  Serious: Yes (Other)
  Sender: FDA-Public Use
  Company Number: FR-MERCK KGAA-2033452

PATIENT
  Age: 78 Year
  Sex: Female

DRUGS (1)
  1. NOVOTHYROX [Suspect]
     Active Substance: LEVOTHYROXINE SODIUM
     Indication: THYROIDECTOMY
     Route: 048
     Dates: start: 20170601, end: 20170921

REACTIONS (13)
  - Headache [Recovering/Resolving]
  - Myalgia [Not Recovered/Not Resolved]
  - International normalised ratio abnormal [Recovering/Resolving]
  - Fatigue [Recovering/Resolving]
  - Irritability [Recovered/Resolved]
  - Personal relationship issue [Recovered/Resolved]
  - Speech disorder [Recovering/Resolving]
  - Weight decreased [Not Recovered/Not Resolved]
  - Vertigo [Recovering/Resolving]
  - Arthralgia [Recovering/Resolving]
  - Alopecia [Recovered/Resolved]
  - Blood thyroid stimulating hormone [Not Recovered/Not Resolved]
  - Insomnia [Recovering/Resolving]

NARRATIVE: CASE EVENT DATE: 201707
